FAERS Safety Report 12400824 (Version 1)
Quarter: 2016Q2

REPORT INFORMATION
  Report Type: Spontaneous
  Country: US (occurrence: None)
  Receive Date: 20160524
  Receipt Date: 20160524
  Transmission Date: 20160815
  Serious: No
  Sender: FDA-Public Use
  Company Number: None

PATIENT
  Age: 49 Year
  Sex: Female

DRUGS (14)
  1. LEVOTHYROXINE. [Concomitant]
     Active Substance: LEVOTHYROXINE
  2. BUDESONIDE. [Concomitant]
     Active Substance: BUDESONIDE
  3. ADCIRCA [Suspect]
     Active Substance: TADALAFIL
     Indication: HYPERTENSION
     Route: 048
     Dates: start: 20160520
  4. PANTOPRAZOLE [Concomitant]
     Active Substance: PANTOPRAZOLE SODIUM
  5. TRAMADOL. [Concomitant]
     Active Substance: TRAMADOL
  6. CYCLOBENZAPRINE [Concomitant]
     Active Substance: CYCLOBENZAPRINE
  7. ESTRACE [Concomitant]
     Active Substance: ESTRADIOL
  8. METOROLOL [Concomitant]
  9. MYCOPHENOLATE [Concomitant]
     Active Substance: MYCOPHENOLIC ACID
  10. PREDNISONE. [Concomitant]
     Active Substance: PREDNISONE
  11. SPIRONOLACTONE. [Concomitant]
     Active Substance: SPIRONOLACTONE
  12. LETAIRIS [Concomitant]
     Active Substance: AMBRISENTAN
  13. AMLODIPINE [Concomitant]
     Active Substance: AMLODIPINE BESYLATE
  14. CLOBETASOL [Concomitant]
     Active Substance: CLOBETASOL

REACTIONS (2)
  - Condition aggravated [None]
  - Headache [None]

NARRATIVE: CASE EVENT DATE: 201605
